FAERS Safety Report 12864843 (Version 1)
Quarter: 2016Q4

REPORT INFORMATION
  Report Type: Spontaneous
  Country: JP (occurrence: JP)
  Receive Date: 20161020
  Receipt Date: 20161020
  Transmission Date: 20170207
  Serious: Yes (Life-Threatening, Other)
  Sender: FDA-Public Use
  Company Number: JP-ACCORD-044965

PATIENT
  Age: 36 Year
  Sex: Female

DRUGS (9)
  1. LEVOFLOXACIN/LEVOFLOXACIN MESYLATE [Concomitant]
     Indication: PROPHYLAXIS
  2. FLUCONAZOLE. [Concomitant]
     Active Substance: FLUCONAZOLE
     Indication: PROPHYLAXIS
  3. IFOSFAMIDE. [Suspect]
     Active Substance: IFOSFAMIDE
     Indication: CHORIOCARCINOMA
     Dosage: IFOSFAMIDE 2,000 MG/M2 D.I.V. (HOUR 1, DAY 1 TO 2), MINI ICE; TWO COURSES
     Route: 041
  4. FILGRASTIM/GRANULOCYTE COLONY STIMULATING/LENOGRASTIM [Concomitant]
     Route: 058
  5. ETOPOSIDE. [Suspect]
     Active Substance: ETOPOSIDE
     Indication: CHORIOCARCINOMA
     Dosage: ETOPOSIDE 150 MG/M2 D.I.V. (HOUR 11, DAY 1 TO 2). MINI ICE; TWO COURSES.
     Route: 041
  6. CARBOPLATIN. [Suspect]
     Active Substance: CARBOPLATIN
     Indication: CHORIOCARCINOMA
     Dosage: CARBOPLATIN 200 MG/M2 D.I.V. (HOUR 1, DAY 1 TO 2), MINI ICE; TWO COURSES
     Route: 041
  7. CYCLOPHOSPHAMIDE/CYCLOPHOSPHAMIDE MONOHYDRATE [Concomitant]
     Indication: CHORIOCARCINOMA
     Dosage: 2 G/M2; DAY 1 TO 2
  8. ACICLOVIR [Concomitant]
     Active Substance: ACYCLOVIR
     Indication: PROPHYLAXIS
  9. SULFAMETHOXAZOLE/TRIMETHOPRIM [Concomitant]
     Indication: PROPHYLAXIS

REACTIONS (11)
  - Thrombocytopenia [Unknown]
  - Febrile neutropenia [Unknown]
  - Anaemia [Unknown]
  - Neutropenia [Unknown]
  - Mouth ulceration [Unknown]
  - Hepatic function abnormal [Unknown]
  - Fatigue [Unknown]
  - Decreased appetite [Unknown]
  - Peripheral sensory neuropathy [Unknown]
  - Skin exfoliation [Unknown]
  - Blood creatinine increased [Unknown]
